FAERS Safety Report 20081881 (Version 1)
Quarter: 2021Q4

REPORT INFORMATION
  Report Type: Spontaneous
  Country: US (occurrence: None)
  Receive Date: 20211117
  Receipt Date: 20211117
  Transmission Date: 20220303
  Serious: Yes (Disabling, Other)
  Sender: FDA-Public Use
  Company Number: None

PATIENT
  Age: 29 Year
  Sex: Female
  Weight: 61 kg

DRUGS (1)
  1. SPIRONOLACTONE [Suspect]
     Active Substance: SPIRONOLACTONE
     Dosage: FREQUENCY : AT BEDTIME;?
     Route: 048

REACTIONS (4)
  - Myalgia [None]
  - Pain in extremity [None]
  - Neuralgia [None]
  - Pain in extremity [None]

NARRATIVE: CASE EVENT DATE: 20210815
